FAERS Safety Report 21373220 (Version 3)
Quarter: 2023Q1

REPORT INFORMATION
  Report Type: Spontaneous
  Country: US (occurrence: US)
  Receive Date: 20220924
  Receipt Date: 20230328
  Transmission Date: 20230418
  Serious: Yes (Other)
  Sender: FDA-Public Use
  Company Number: US-CTI BIOPHARMA-2022US03011

PATIENT

DRUGS (3)
  1. VONJO [Suspect]
     Active Substance: PACRITINIB
     Indication: Myelofibrosis
     Dosage: 200 MG, BID
     Route: 048
     Dates: start: 20220416, end: 202209
  2. VONJO [Suspect]
     Active Substance: PACRITINIB
     Dosage: 200 MG, BID
     Route: 048
     Dates: start: 202209
  3. FEBUXOSTAT [Concomitant]
     Active Substance: FEBUXOSTAT
     Dosage: UNK

REACTIONS (14)
  - Squamous cell carcinoma [Unknown]
  - Fatigue [Not Recovered/Not Resolved]
  - Spleen disorder [Unknown]
  - Somnolence [Unknown]
  - Rash [Unknown]
  - Bacterial infection [Unknown]
  - Biopsy [Unknown]
  - Chills [Unknown]
  - Feeling cold [Unknown]
  - Skin neoplasm excision [Unknown]
  - Nerve compression [Unknown]
  - COVID-19 [Unknown]
  - Platelet count decreased [Unknown]
  - Diarrhoea [Not Recovered/Not Resolved]

NARRATIVE: CASE EVENT DATE: 20220101
